FAERS Safety Report 20565684 (Version 2)
Quarter: 2022Q1

REPORT INFORMATION
  Report Type: Spontaneous
  Country: JP (occurrence: JP)
  Receive Date: 20220308
  Receipt Date: 20220330
  Transmission Date: 20220423
  Serious: No
  Sender: FDA-Public Use
  Company Number: JP-GLAXOSMITHKLINE-JP2022JPN039502

PATIENT
  Sex: Female
  Weight: 80 kg

DRUGS (3)
  1. SOTROVIMAB [Suspect]
     Active Substance: SOTROVIMAB
     Indication: COVID-19
     Dosage: 500 MG/DAY
     Route: 042
     Dates: start: 20220228, end: 20220228
  2. HERBALS [Suspect]
     Active Substance: HERBALS
     Dosage: 7.5 G/DAY
     Route: 048
  3. RITODRINE [Suspect]
     Active Substance: RITODRINE
     Dosage: PRN (5 MG/DOSE)
     Route: 048

REACTIONS (1)
  - Exposure during pregnancy [Unknown]
